FAERS Safety Report 22214544 (Version 3)
Quarter: 2023Q2

REPORT INFORMATION
  Report Type: Spontaneous
  Country: PT (occurrence: PT)
  Receive Date: 20230415
  Receipt Date: 20230505
  Transmission Date: 20230722
  Serious: Yes (Life-Threatening, Hospitalization, Other)
  Sender: FDA-Public Use
  Company Number: PT-AUROBINDO-AUR-APL-2023-030197

PATIENT
  Age: 64 Year
  Sex: Female

DRUGS (2)
  1. LIDOCAINE [Suspect]
     Active Substance: LIDOCAINE
     Indication: Pain
     Dosage: UNK (INTERCOSTAL), MULTIPLE ADMINISTRATIONS; UNKNOWN CONCENTRATION INJECTION
     Route: 050
  2. LIDOCAINE [Suspect]
     Active Substance: LIDOCAINE
     Indication: Local anaesthesia

REACTIONS (6)
  - Local anaesthetic systemic toxicity [Recovered/Resolved]
  - Toxicity to various agents [Recovered/Resolved]
  - Prescribed overdose [Recovered/Resolved]
  - Accidental overdose [Recovering/Resolving]
  - Product communication issue [Recovering/Resolving]
  - Incorrect dose administered [Recovering/Resolving]
